FAERS Safety Report 15553908 (Version 13)
Quarter: 2019Q2

REPORT INFORMATION
  Report Type: Report from Study
  Country: CA (occurrence: CA)
  Receive Date: 20181026
  Receipt Date: 20190508
  Transmission Date: 20190711
  Serious: Yes (Hospitalization, Other)
  Sender: FDA-Public Use
  Company Number: CA-BIOGEN-2018BI00649786

PATIENT
  Age: 46 Year
  Sex: Female

DRUGS (3)
  1. TECFIDERA [Suspect]
     Active Substance: DIMETHYL FUMARATE
     Dosage: MAINTENANCE DOSE
     Route: 050
     Dates: end: 201812
  2. TECFIDERA [Suspect]
     Active Substance: DIMETHYL FUMARATE
     Indication: MULTIPLE SCLEROSIS
     Dosage: MAINTENANCE DOSE
     Route: 050
     Dates: start: 20170410, end: 20181106
  3. MEREN (ANTIBIOTIC) [Suspect]
     Active Substance: MEROPENEM
     Indication: PRODUCT USED FOR UNKNOWN INDICATION
     Route: 050

REACTIONS (15)
  - Headache [Unknown]
  - Migraine [Unknown]
  - Body temperature decreased [Unknown]
  - Rash [Unknown]
  - Erythema [Unknown]
  - Diverticulitis [Unknown]
  - Mobility decreased [Unknown]
  - Hypoaesthesia [Unknown]
  - Motor dysfunction [Unknown]
  - Body temperature increased [Recovered/Resolved]
  - Peritonitis [Unknown]
  - Intestinal perforation [Unknown]
  - Muscular weakness [Not Recovered/Not Resolved]
  - Drug hypersensitivity [Unknown]
  - Infection [Unknown]

NARRATIVE: CASE EVENT DATE: 20181016
